FAERS Safety Report 14980593 (Version 1)
Quarter: 2018Q2

REPORT INFORMATION
  Report Type: Spontaneous
  Country: JP (occurrence: JP)
  Receive Date: 20180606
  Receipt Date: 20180606
  Transmission Date: 20180711
  Serious: Yes (Death, Other)
  Sender: FDA-Public Use
  Company Number: PHJP2018JP012034

PATIENT
  Age: 87 Year
  Sex: Male

DRUGS (2)
  1. GLIVEC [Suspect]
     Active Substance: IMATINIB MESYLATE
     Indication: CHRONIC MYELOID LEUKAEMIA
     Dosage: 200 MG, UNK
     Route: 048
     Dates: start: 200207
  2. GLIVEC [Suspect]
     Active Substance: IMATINIB MESYLATE
     Dosage: 100 MG, UNK
     Route: 048
     Dates: start: 200701, end: 201608

REACTIONS (3)
  - Death [Fatal]
  - Cardiac failure [Unknown]
  - Anaemia [Recovering/Resolving]

NARRATIVE: CASE EVENT DATE: 200612
